FAERS Safety Report 5505200-5 (Version None)
Quarter: 2007Q4

REPORT INFORMATION
  Report Type: 
  Country: None (occurrence: None)
  Receive Date: 20071102
  Receipt Date: 20071022
  Transmission Date: 20080405
  Serious: Yes (Life-Threatening)
  Sender: FDA-Public Use
  Company Number: JP-TYCO HEALTHCARE/MALLINCKRODT-T200701241

PATIENT

DRUGS (4)
  1. OPTIRAY 300 [Suspect]
     Indication: COMPUTERISED TOMOGRAM ABDOMEN
     Dosage: 100 ML, SINGLE
     Route: 042
     Dates: start: 20071011, end: 20071011
  2. ASPIRIN [Concomitant]
     Indication: AORTIC ANEURYSM
     Dosage: 100 MG, QD
     Route: 048
  3. AMLODIPINE BESYLATE [Concomitant]
     Indication: AORTIC ANEURYSM
     Dosage: 2.5 MG, QD
     Route: 048
  4. METHYLPREDNISOLONE SODIUM SUCCINATE [Concomitant]
     Indication: PREMEDICATION
     Dosage: 125 MG, QD
     Route: 042
     Dates: start: 20071011, end: 20071011

REACTIONS (2)
  - BLOOD PRESSURE DECREASED [None]
  - DYSPNOEA [None]
